FAERS Safety Report 7060043-9 (Version None)
Quarter: 2010Q4

REPORT INFORMATION
  Report Type: 
  Country: None (occurrence: None)
  Receive Date: 20101025
  Receipt Date: 20100324
  Transmission Date: 20110411
  Serious: No
  Sender: FDA-Public Use
  Company Number: US-BRISTOL-MYERS SQUIBB COMPANY-15038797

PATIENT
  Age: 24 Year
  Sex: Female

DRUGS (6)
  1. BUSPAR [Suspect]
     Dates: start: 20090101
  2. METFORMIN HCL [Suspect]
     Dates: start: 20090101
  3. PROVIGIL [Suspect]
     Dosage: TABLET
     Dates: start: 20090101
  4. LEVOTHYROXINE [Suspect]
     Dates: start: 20090101
  5. LEXAPRO [Suspect]
     Dates: start: 20090101
  6. NASONEX [Suspect]
     Dates: start: 20090101

REACTIONS (2)
  - LIVE BIRTH [None]
  - PREGNANCY [None]
